FAERS Safety Report 8258798 (Version 2)
Quarter: 2013Q4

REPORT INFORMATION
  Report Type: Spontaneous
  Country: IR (occurrence: IR)
  Receive Date: 20111122
  Receipt Date: 20131211
  Transmission Date: 20140711
  Serious: Yes (Death, Other)
  Sender: FDA-Public Use
  Company Number: PHHY2011IR101071

PATIENT
  Age: 47 Year
  Sex: Female

DRUGS (2)
  1. CO-TRIMOXAZOLE [Suspect]
     Indication: URINARY TRACT INFECTION
     Dosage: 460 MG, BID
  2. RISPERIDONE [Suspect]
     Indication: PSYCHOTIC DISORDER
     Dosage: 4 MG, DAILY

REACTIONS (8)
  - Sudden cardiac death [Fatal]
  - Loss of consciousness [Fatal]
  - Electrocardiogram QT prolonged [Unknown]
  - Circulatory collapse [Unknown]
  - Ventricular fibrillation [Unknown]
  - Ventricular tachycardia [Unknown]
  - Cardiac arrest [Unknown]
  - Drug ineffective [Unknown]
